FAERS Safety Report 21296902 (Version 1)
Quarter: 2022Q3

REPORT INFORMATION
  Report Type: Spontaneous
  Country: US (occurrence: US)
  Receive Date: 20220906
  Receipt Date: 20220906
  Transmission Date: 20221027
  Serious: Yes (Other)
  Sender: FDA-Public Use
  Company Number: US-SA-SAC20220905000110

PATIENT

DRUGS (1)
  1. ZANTAC [Suspect]
     Active Substance: RANITIDINE HYDROCHLORIDE
     Dosage: UNK, OVER THE COUNTER ZANTAC FROM APPROXIMATELY 2007 TO 2020
     Route: 048
     Dates: start: 2007, end: 2020

REACTIONS (2)
  - Breast cancer [Unknown]
  - Renal cancer [Unknown]
